FAERS Safety Report 13903634 (Version 1)
Quarter: 2017Q3

REPORT INFORMATION
  Report Type: Spontaneous
  Country: GB (occurrence: GB)
  Receive Date: 20170824
  Receipt Date: 20170824
  Transmission Date: 20171127
  Serious: Yes (Hospitalization, Other)
  Sender: FDA-Public Use
  Company Number: GB-MYLANLABS-2017M1051158

PATIENT
  Age: 27 Year
  Sex: Female
  Weight: 53.52 kg

DRUGS (2)
  1. LAMOTRIGINE. [Concomitant]
     Active Substance: LAMOTRIGINE
     Dosage: UNK
  2. AZITHROMYCIN ANHYDROUS. [Suspect]
     Active Substance: AZITHROMYCIN ANHYDROUS
     Indication: PELVIC INFLAMMATORY DISEASE
     Dosage: 500 MG, BID
     Route: 048
     Dates: start: 20170604, end: 20170612

REACTIONS (8)
  - Delirium [Recovered/Resolved with Sequelae]
  - Violence-related symptom [Unknown]
  - Arthralgia [Unknown]
  - Mania [Unknown]
  - Syncope [Recovered/Resolved]
  - Self-injurious ideation [Unknown]
  - Tendonitis [Recovering/Resolving]
  - Arrhythmia [Recovered/Resolved]

NARRATIVE: CASE EVENT DATE: 20170610
